FAERS Safety Report 20048868 (Version 2)
Quarter: 2021Q4

REPORT INFORMATION
  Report Type: Spontaneous
  Country: US (occurrence: US)
  Receive Date: 20211109
  Receipt Date: 20211125
  Transmission Date: 20220304
  Serious: Yes (Hospitalization, Other)
  Sender: FDA-Public Use
  Company Number: US-Accord-244408

PATIENT
  Age: 32 Year
  Sex: Male
  Weight: 88 kg

DRUGS (2)
  1. DEXMEDETOMIDINE HYDROCHLORIDE [Suspect]
     Active Substance: DEXMEDETOMIDINE HYDROCHLORIDE
     Indication: Sedation
     Dosage: 0.2 MCG/KG/HR AND UP-TITRATION 0.8 MCG/KG/HR
  2. VASOPRESSIN [Concomitant]
     Active Substance: VASOPRESSIN
     Dosage: 02 UNITS/MIN

REACTIONS (4)
  - Diabetes insipidus [Recovered/Resolved]
  - Torsade de pointes [Recovered/Resolved]
  - Cardiac arrest [Unknown]
  - Electrolyte imbalance [Recovered/Resolved]
